FAERS Safety Report 9732481 (Version 1)
Quarter: 2013Q4

REPORT INFORMATION
  Report Type: Spontaneous
  Country: US (occurrence: US)
  Receive Date: 20131205
  Receipt Date: 20131205
  Transmission Date: 20140711
  Serious: No
  Sender: FDA-Public Use
  Company Number: US-PFIZER INC-2013342971

PATIENT
  Age: 36 Year
  Sex: Female
  Weight: 90.7 kg

DRUGS (1)
  1. ADVIL [Suspect]
     Indication: TOOTHACHE
     Dosage: 400MG (2X200MG), TWO TIMES A DAY
     Route: 048
     Dates: start: 20131128

REACTIONS (2)
  - Dyspepsia [Recovering/Resolving]
  - Vomiting [Unknown]
